FAERS Safety Report 4333838-X (Version None)
Quarter: 2004Q2

REPORT INFORMATION
  Report Type: 
  Country: None (occurrence: None)
  Receive Date: 20040402
  Receipt Date: 20040323
  Transmission Date: 20050107
  Serious: Yes (Other)
  Sender: FDA-Public Use
  Company Number: 2004019974

PATIENT
  Sex: Female
  Weight: 81.6475 kg

DRUGS (4)
  1. NEURONTIN [Suspect]
     Indication: CERVICOBRACHIAL SYNDROME
     Dosage: 1800 MG (TID), ORAL
     Route: 048
     Dates: start: 20000101
  2. PANADEINE (CODEINE PHSOPHATE, PARACETAMOL) [Concomitant]
  3. BENADRYL [Concomitant]
  4. ALBUTEROL [Concomitant]

REACTIONS (3)
  - AMNESIA [None]
  - ANAEMIA VITAMIN B12 DEFICIENCY [None]
  - HERPES ZOSTER [None]
